FAERS Safety Report 13026112 (Version 1)
Quarter: 2016Q4

REPORT INFORMATION
  Report Type: Spontaneous
  Country: US (occurrence: US)
  Receive Date: 20161214
  Receipt Date: 20161214
  Transmission Date: 20170207
  Serious: No
  Sender: FDA-Public Use
  Company Number: US-JNJFOC-20161121761

PATIENT
  Sex: Female
  Weight: 61.69 kg

DRUGS (3)
  1. INVEGA SUSTENNA [Suspect]
     Active Substance: PALIPERIDONE PALMITATE
     Indication: SCHIZOPHRENIA
     Route: 030
     Dates: start: 2014
  2. SEROQUEL [Concomitant]
     Active Substance: QUETIAPINE FUMARATE
     Indication: PRODUCT USED FOR UNKNOWN INDICATION
     Route: 065
  3. ABILIFY [Concomitant]
     Active Substance: ARIPIPRAZOLE
     Indication: PRODUCT USED FOR UNKNOWN INDICATION
     Route: 065

REACTIONS (11)
  - Hallucination, visual [Unknown]
  - Hallucination, auditory [Unknown]
  - Hallucination [Unknown]
  - Injection site pain [Unknown]
  - Muscular weakness [Unknown]
  - Pain [Unknown]
  - Soliloquy [Unknown]
  - Anaemia [Unknown]
  - Needle issue [Unknown]
  - Injection site haemorrhage [Unknown]
  - Pruritus [Unknown]
